FAERS Safety Report 22590211 (Version 3)
Quarter: 2023Q4

REPORT INFORMATION
  Report Type: Report from Study
  Country: US (occurrence: US)
  Receive Date: 20230612
  Receipt Date: 20231228
  Transmission Date: 20240110
  Serious: Yes (Other)
  Sender: FDA-Public Use
  Company Number: US-ABBVIE-5284792

PATIENT
  Sex: Female

DRUGS (4)
  1. SKYRIZI [Suspect]
     Active Substance: RISANKIZUMAB-RZAA
     Indication: Psoriatic arthropathy
     Dosage: FORM STRENGTH 150 MILLIGRAM?WEEK 4
     Route: 058
     Dates: start: 2023, end: 2023
  2. SKYRIZI [Suspect]
     Active Substance: RISANKIZUMAB-RZAA
     Indication: Ankylosing spondylitis
     Dosage: FORM STRENGTH 150 MILLIGRAM?WEEK 0
     Route: 058
     Dates: start: 202302, end: 202302
  3. SKYRIZI [Suspect]
     Active Substance: RISANKIZUMAB-RZAA
     Dosage: FORM STRENGTH 150 MILLIGRAM
     Route: 058
     Dates: start: 2023, end: 2023
  4. SKYRIZI [Suspect]
     Active Substance: RISANKIZUMAB-RZAA
     Dosage: FORM STRENGTH: 150 MG
     Route: 058
     Dates: start: 2023

REACTIONS (9)
  - Eye operation [Unknown]
  - Pain [Unknown]
  - Chills [Not Recovered/Not Resolved]
  - Infection [Not Recovered/Not Resolved]
  - Psoriatic arthropathy [Not Recovered/Not Resolved]
  - Asthma [Unknown]
  - Loss of personal independence in daily activities [Unknown]
  - Dyspnoea [Unknown]
  - Pain [Not Recovered/Not Resolved]

NARRATIVE: CASE EVENT DATE: 20230101
